FAERS Safety Report 23486909 (Version 2)
Quarter: 2024Q1

REPORT INFORMATION
  Report Type: Spontaneous
  Country: CN (occurrence: CN)
  Receive Date: 20240206
  Receipt Date: 20240212
  Transmission Date: 20240410
  Serious: Yes (Death, Life-Threatening, Hospitalization, Other)
  Sender: FDA-Public Use
  Company Number: CN-PFIZER INC-202400032025

PATIENT
  Age: 53 Year
  Sex: Male

DRUGS (9)
  1. METHYLPREDNISOLONE SODIUM SUCCINATE [Suspect]
     Active Substance: METHYLPREDNISOLONE SODIUM SUCCINATE
     Indication: Drug reaction with eosinophilia and systemic symptoms
     Dosage: 80 MG, DAILY
     Route: 042
  2. VORICONAZOLE [Suspect]
     Active Substance: VORICONAZOLE
     Indication: Drug reaction with eosinophilia and systemic symptoms
     Dosage: 200 MG, 1X/DAY
  3. VORICONAZOLE [Suspect]
     Active Substance: VORICONAZOLE
     Indication: Antifungal treatment
  4. HUMAN IMMUNOGLOBULIN G [Suspect]
     Active Substance: HUMAN IMMUNOGLOBULIN G
     Indication: Drug reaction with eosinophilia and systemic symptoms
     Dosage: 5 MG, DAILY
     Route: 042
  5. CYCLOSPORINE [Suspect]
     Active Substance: CYCLOSPORINE
     Indication: Drug reaction with eosinophilia and systemic symptoms
     Dosage: 50 MG, 2X/DAY
  6. PRIMAQUINE [Suspect]
     Active Substance: PRIMAQUINE
     Indication: Drug reaction with eosinophilia and systemic symptoms
     Dosage: 30 MG, 1X/DAY
  7. CLINDAMYCIN [Suspect]
     Active Substance: CLINDAMYCIN
     Indication: Drug reaction with eosinophilia and systemic symptoms
     Dosage: 600 MG, 3X/DAY
  8. CASPOFUNGIN [Suspect]
     Active Substance: CASPOFUNGIN
     Indication: Drug reaction with eosinophilia and systemic symptoms
     Dosage: 50 MG, 1X/DAY
  9. CASPOFUNGIN [Suspect]
     Active Substance: CASPOFUNGIN
     Indication: Antifungal treatment

REACTIONS (1)
  - Drug ineffective [Fatal]
